FAERS Safety Report 8805051 (Version 2)
Quarter: 2015Q1

REPORT INFORMATION
  Report Type: Report from Study
  Country: US (occurrence: US)
  Receive Date: 20120924
  Receipt Date: 20150302
  Transmission Date: 20150721
  Serious: Yes (Death)
  Sender: FDA-Public Use
  Company Number: US-ROCHE-1096294

PATIENT
  Sex: Male
  Weight: 53 kg

DRUGS (5)
  1. AVASTIN [Suspect]
     Active Substance: BEVACIZUMAB
     Indication: LUNG NEOPLASM MALIGNANT
     Route: 042
     Dates: start: 20050829, end: 20050928
  2. NAVELBINE [Concomitant]
     Active Substance: VINORELBINE TARTRATE
  3. AVASTIN [Suspect]
     Active Substance: BEVACIZUMAB
     Indication: BONE CANCER
  4. GEMZAR [Concomitant]
     Active Substance: GEMCITABINE HYDROCHLORIDE
  5. CAMPTOTHECIN [Concomitant]
     Active Substance: CAMPTOTHECIN

REACTIONS (8)
  - Death [Fatal]
  - Metastases to adrenals [Unknown]
  - Metastases to bone [Unknown]
  - Off label use [Unknown]
  - Osteosclerosis [Unknown]
  - Metastases to lung [Unknown]
  - Metastases to central nervous system [Unknown]
  - Metastases to liver [Unknown]
